FAERS Safety Report 21932644 (Version 2)
Quarter: 2023Q1

REPORT INFORMATION
  Report Type: Spontaneous
  Country: US (occurrence: None)
  Receive Date: 20230131
  Receipt Date: 20230314
  Transmission Date: 20230417
  Serious: No
  Sender: FDA-Public Use
  Company Number: 2023A020187

PATIENT
  Sex: Female

DRUGS (1)
  1. SYMBICORT [Suspect]
     Active Substance: BUDESONIDE\FORMOTEROL FUMARATE DIHYDRATE
     Indication: Asthma
     Dosage: 160/4.5 MCG, 2 PUFFS, 3-4 TIMES A DAY
     Route: 055

REACTIONS (10)
  - Dyspnoea [Unknown]
  - Malaise [Unknown]
  - Memory impairment [Unknown]
  - Sinusitis [Unknown]
  - Device malfunction [Unknown]
  - Incorrect dose administered by device [Unknown]
  - Product dose omission issue [Unknown]
  - Intentional device misuse [Unknown]
  - Intentional product misuse [Unknown]
  - Wrong technique in product usage process [Unknown]
